FAERS Safety Report 6062527-9 (Version None)
Quarter: 2009Q1

REPORT INFORMATION
  Report Type: 
  Country: None (occurrence: None)
  Receive Date: 20090203
  Receipt Date: 20090123
  Transmission Date: 20090719
  Serious: Yes (Hospitalization)
  Sender: FDA-Public Use
  Company Number: FR-JNJFOC-20090106302

PATIENT
  Age: 60 Year
  Sex: Male

DRUGS (7)
  1. OFLOXACIN [Suspect]
     Indication: ARTHRITIS BACTERIAL
     Route: 048
  2. ORBENINE [Suspect]
     Route: 042
  3. ORBENINE [Suspect]
     Indication: ARTHRITIS BACTERIAL
     Dosage: SOLUTION FOR INFUSION
     Route: 042
  4. COLCHIMAX [Suspect]
     Indication: CHONDROCALCINOSIS
     Route: 048
  5. PERFALGAN [Suspect]
     Indication: DRUG USE FOR UNKNOWN INDICATION
     Route: 042
  6. COTAREG [Concomitant]
     Indication: HYPERTENSION
     Route: 065
  7. DAONIL [Concomitant]
     Indication: TYPE 2 DIABETES MELLITUS
     Route: 065

REACTIONS (1)
  - DRUG RASH WITH EOSINOPHILIA AND SYSTEMIC SYMPTOMS [None]
